FAERS Safety Report 6846004-0 (Version None)
Quarter: 2010Q3

REPORT INFORMATION
  Report Type: 
  Country: None (occurrence: None)
  Receive Date: 20100715
  Receipt Date: 20070905
  Transmission Date: 20110219
  Serious: No
  Sender: FDA-Public Use
  Company Number: US-PFIZER INC-2007074469

PATIENT
  Sex: Male
  Weight: 106.6 kg

DRUGS (3)
  1. CHANTIX [Suspect]
     Indication: SMOKING CESSATION THERAPY
     Dates: start: 20070904
  2. LORCET-HD [Concomitant]
  3. XANAX [Concomitant]

REACTIONS (4)
  - ASTHENIA [None]
  - DYSGEUSIA [None]
  - FATIGUE [None]
  - MALAISE [None]
